FAERS Safety Report 20102349 (Version 5)
Quarter: 2022Q2

REPORT INFORMATION
  Report Type: Spontaneous
  Country: GB (occurrence: GB)
  Receive Date: 20211123
  Receipt Date: 20220418
  Transmission Date: 20220720
  Serious: Yes (Disabling, Other)
  Sender: FDA-Public Use
  Company Number: None

PATIENT
  Age: 52 Year
  Sex: Female

DRUGS (1)
  1. BARIUM SULFATE [Suspect]
     Active Substance: BARIUM SULFATE
     Dosage: NO IDEA OF DOSAGE - WHATEVER IS GIVEN AT BARIUM SWALLOW XRAY BY HOSPITAL
     Route: 048
     Dates: start: 20170817, end: 20170817

REACTIONS (11)
  - Urticaria [Recovered/Resolved]
  - Joint swelling [Recovered/Resolved]
  - Influenza like illness [Unknown]
  - Hyperhidrosis [Unknown]
  - Feeling hot [Unknown]
  - Pain [Unknown]
  - Papule [Unknown]
  - Pruritus [Unknown]
  - Hypersensitivity [Unknown]
  - Inflammation [Recovered/Resolved]
  - Headache [Unknown]

NARRATIVE: CASE EVENT DATE: 20170817
